FAERS Safety Report 6008240-5 (Version None)
Quarter: 2008Q4

REPORT INFORMATION
  Report Type: 
  Country: None (occurrence: None)
  Receive Date: 20081217
  Receipt Date: 20080827
  Transmission Date: 20090506
  Serious: No
  Sender: FDA-Public Use
  Company Number: US-AMGEN-KDL304107

PATIENT
  Sex: Female

DRUGS (11)
  1. ENBREL [Suspect]
     Indication: RHEUMATOID ARTHRITIS
     Route: 058
  2. LEVOXYL [Concomitant]
  3. HYDROCHLOROTHIAZIDE [Concomitant]
  4. UNKNOWN [Concomitant]
  5. CELEBREX [Concomitant]
  6. METHOTREXATE [Concomitant]
  7. OXYCODONE [Concomitant]
  8. CALCIUM [Concomitant]
  9. FOLIC ACID [Concomitant]
  10. LOVAZA [Concomitant]
  11. TEMAZEPAM [Concomitant]

REACTIONS (3)
  - INJECTION SITE HAEMORRHAGE [None]
  - INJECTION SITE PAIN [None]
  - PAIN [None]
